FAERS Safety Report 8316986-9 (Version None)
Quarter: 2012Q2

REPORT INFORMATION
  Report Type: 
  Country: None (occurrence: None)
  Receive Date: 20120427
  Receipt Date: 20120420
  Transmission Date: 20120825
  Serious: Yes (Hospitalization, Other)
  Sender: FDA-Public Use
  Company Number: US-BAYER-2011-099086

PATIENT
  Age: 35 Year
  Sex: Female
  Weight: 65.76 kg

DRUGS (8)
  1. CEFTIN [Concomitant]
     Indication: SINUSITIS
  2. MULTI-VITAMIN [Concomitant]
     Indication: SUPPLEMENTATION THERAPY
     Dosage: UNK UNK, QD
  3. VACCINES [Concomitant]
  4. LEXAPRO [Concomitant]
     Indication: PANIC ATTACK
     Dosage: UNK
     Dates: start: 20080101
  5. YAZ [Suspect]
     Indication: CONTRACEPTION
     Dosage: UNK
     Dates: start: 20091108, end: 20091119
  6. MOTRIN [Concomitant]
     Indication: PAIN
     Dosage: 800 MG, UNK
     Route: 048
     Dates: start: 20091031
  7. ANTIBIOTICS [Concomitant]
  8. VICODIN [Concomitant]
     Indication: PAIN
     Dosage: UNK
     Route: 048
     Dates: start: 20091031

REACTIONS (2)
  - PULMONARY EMBOLISM [None]
  - DEEP VEIN THROMBOSIS [None]
